FAERS Safety Report 5705945-8 (Version None)
Quarter: 2008Q2

REPORT INFORMATION
  Report Type: 
  Country: None (occurrence: None)
  Receive Date: 20080411
  Receipt Date: 20080328
  Transmission Date: 20081010
  Serious: Yes (Hospitalization)
  Sender: FDA-Public Use
  Company Number: 013526

PATIENT
  Age: 36 Year
  Sex: Male

DRUGS (3)
  1. PRIALT [Suspect]
     Indication: POST LAMINECTOMY SYNDROME
     Dosage: 0.1 UG, ONCE/HOUR, INTRATHECAL; 0.41 UG ONCE/HOUR, INTRATHECAL
     Route: 037
     Dates: start: 20080227
  2. PRIALT [Suspect]
     Indication: POST LAMINECTOMY SYNDROME
     Dosage: 0.1 UG, ONCE/HOUR, INTRATHECAL; 0.41 UG ONCE/HOUR, INTRATHECAL
     Route: 037
     Dates: start: 20080314
  3. HYDROMORPHONE HCL [Concomitant]

REACTIONS (3)
  - BALANCE DISORDER [None]
  - DIZZINESS [None]
  - HAEMORRHAGE [None]
